FAERS Safety Report 16255384 (Version 1)
Quarter: 2019Q2

REPORT INFORMATION
  Report Type: Spontaneous
  Country: US (occurrence: US)
  Receive Date: 20190429
  Receipt Date: 20190429
  Transmission Date: 20190711
  Serious: Yes (Hospitalization)
  Sender: FDA-Public Use
  Company Number: None

PATIENT
  Age: 29 Year
  Sex: Male

DRUGS (1)
  1. CEFTRIAXONE. [Suspect]
     Active Substance: CEFTRIAXONE
     Indication: SINUSITIS
     Dosage: ?          OTHER FREQUENCY:X1;?
     Route: 030
     Dates: start: 20190417, end: 20190417

REACTIONS (2)
  - Dizziness [None]
  - Blood pressure decreased [None]

NARRATIVE: CASE EVENT DATE: 20190417
